FAERS Safety Report 7299442-9 (Version None)
Quarter: 2011Q1

REPORT INFORMATION
  Report Type: 
  Country: None (occurrence: None)
  Receive Date: 20110217
  Receipt Date: 20110214
  Transmission Date: 20110831
  Serious: Yes (Other)
  Sender: FDA-Public Use
  Company Number: B0700070A

PATIENT
  Age: 7 Year
  Sex: Male

DRUGS (2)
  1. RELENZA [Suspect]
     Indication: INFLUENZA LIKE ILLNESS
     Dosage: 20MG PER DAY
     Route: 055
     Dates: start: 20110211, end: 20110211
  2. IBUPROFEN [Concomitant]

REACTIONS (3)
  - SCROTAL OEDEMA [None]
  - RASH [None]
  - ANGIOEDEMA [None]
